FAERS Safety Report 12949239 (Version 1)
Quarter: 2016Q4

REPORT INFORMATION
  Report Type: Report from Study
  Country: None (occurrence: CA)
  Receive Date: 20161116
  Receipt Date: 20161116
  Transmission Date: 20170207
  Serious: Yes (Hospitalization, Other)
  Sender: FDA-Public Use
  Company Number: CA-ABBVIE-16P-028-1782382-00

PATIENT
  Age: 83 Year
  Sex: Male

DRUGS (2)
  1. LUPRON DEPOT [Suspect]
     Active Substance: LEUPROLIDE ACETATE
     Indication: PROSTATE CANCER
     Route: 030
     Dates: start: 20160329
  2. CYMBALTA [Concomitant]
     Active Substance: DULOXETINE HYDROCHLORIDE
     Indication: PRODUCT USED FOR UNKNOWN INDICATION
     Dates: start: 2016

REACTIONS (11)
  - General physical health deterioration [Unknown]
  - Prostatic specific antigen increased [Not Recovered/Not Resolved]
  - Pain [Unknown]
  - Streptococcal sepsis [Not Recovered/Not Resolved]
  - Fall [Unknown]
  - Benign prostatic hyperplasia [Not Recovered/Not Resolved]
  - Confusional state [Unknown]
  - Prostate cancer metastatic [Not Recovered/Not Resolved]
  - Thyroid cyst [Unknown]
  - Prostate cancer metastatic [Unknown]
  - Delirium [Unknown]

NARRATIVE: CASE EVENT DATE: 201606
